FAERS Safety Report 23276004 (Version 1)
Quarter: 2023Q4

REPORT INFORMATION
  Report Type: Report from Study
  Country: CA (occurrence: CA)
  Receive Date: 20231208
  Receipt Date: 20231208
  Transmission Date: 20240109
  Serious: Yes (Other)
  Sender: FDA-Public Use
  Company Number: CA-BAUSCH-BL-2023-017820

PATIENT
  Sex: Female

DRUGS (1)
  1. CONTRAVE [Suspect]
     Active Substance: BUPROPION HYDROCHLORIDE\NALTREXONE HYDROCHLORIDE
     Indication: Weight control
     Dosage: 90/8 MG, 1TAB/DAY
     Route: 048
     Dates: start: 20231031, end: 20231104

REACTIONS (7)
  - Loss of personal independence in daily activities [Unknown]
  - Cardiac disorder [Unknown]
  - Visual impairment [Recovering/Resolving]
  - Thyroid hormones increased [Unknown]
  - Blood cholesterol increased [Unknown]
  - Dizziness [Recovering/Resolving]
  - Feeling abnormal [Unknown]

NARRATIVE: CASE EVENT DATE: 20230101
